FAERS Safety Report 11403183 (Version 1)
Quarter: 2015Q3

REPORT INFORMATION
  Report Type: Spontaneous
  Country: US (occurrence: None)
  Receive Date: 20150812
  Receipt Date: 20150812
  Transmission Date: 20151125
  Serious: No
  Sender: FDA-Public Use
  Company Number: 1505USA015692

PATIENT
  Age: 43 Year
  Sex: Female

DRUGS (2)
  1. RAGWITEK [Suspect]
     Active Substance: AMBROSIA ARTEMISIIFOLIA POLLEN
     Route: 048
     Dates: start: 201505
  2. XYZAL (LEVOCETIRIZINE DIHYDROCHLORIDE) [Concomitant]

REACTIONS (3)
  - Pharyngeal oedema [None]
  - Dysphonia [None]
  - Stomatitis [None]

NARRATIVE: CASE EVENT DATE: 201505
